FAERS Safety Report 8291513-3 (Version None)
Quarter: 2012Q2

REPORT INFORMATION
  Report Type: 
  Country: None (occurrence: None)
  Receive Date: 20120417
  Receipt Date: 20120412
  Transmission Date: 20120825
  Serious: No
  Sender: FDA-Public Use
  Company Number: US-PFIZER INC-2012092389

PATIENT
  Sex: Male
  Weight: 68.934 kg

DRUGS (1)
  1. LYRICA [Suspect]
     Indication: HYPOAESTHESIA
     Dosage: UNK, 3X/DAY
     Route: 048
     Dates: start: 20120405

REACTIONS (2)
  - DRUG INEFFECTIVE [None]
  - OEDEMA PERIPHERAL [None]
